FAERS Safety Report 6304200-5 (Version None)
Quarter: 2009Q3

REPORT INFORMATION
  Report Type: 
  Country: None (occurrence: None)
  Receive Date: 20090810
  Receipt Date: 20090810
  Transmission Date: 20100115
  Serious: Yes (Other)
  Sender: FDA-Public Use
  Company Number: None

PATIENT
  Age: 30 Year
  Sex: Female
  Weight: 61.2356 kg

DRUGS (1)
  1. TUBERSOL [Suspect]
     Indication: SKIN TEST
     Dates: start: 20090803, end: 20090803

REACTIONS (5)
  - ERYTHEMA [None]
  - PAIN [None]
  - PRURITUS [None]
  - REACTION TO PRESERVATIVES [None]
  - TUBERCULIN TEST POSITIVE [None]
